APPROVED DRUG PRODUCT: E-Z-CAT DRY
Active Ingredient: BARIUM SULFATE
Strength: 40%
Dosage Form/Route: FOR SUSPENSION;ORAL
Application: N208036 | Product #003
Applicant: BRACCO DIAGNOSTICS INC
Approved: Jan 3, 2017 | RLD: Yes | RS: No | Type: DISCN